FAERS Safety Report 15678143 (Version 2)
Quarter: 2019Q2

REPORT INFORMATION
  Report Type: Spontaneous
  Country: US (occurrence: US)
  Receive Date: 20181201
  Receipt Date: 20190514
  Transmission Date: 20190711
  Serious: Yes (Death, Hospitalization, Other)
  Sender: FDA-Public Use
  Company Number: US-AUROBINDO-AUR-APL-2018-057413

PATIENT

DRUGS (2)
  1. DEXAMETHASONE. [Suspect]
     Active Substance: DEXAMETHASONE
     Indication: NEUROSARCOIDOSIS
     Dosage: 8 MILLIGRAM, DAILY
     Route: 065
  2. INFLIXIMAB [Suspect]
     Active Substance: INFLIXIMAB
     Indication: NEUROSARCOIDOSIS
     Dosage: 5 MILLIGRAM/KILOGRAM MONTHLY FOR A TOTAL OF THREE DOSES
     Route: 042

REACTIONS (12)
  - Disorientation [Unknown]
  - CSF protein increased [Unknown]
  - Aspergillus infection [Fatal]
  - Acute respiratory failure [Fatal]
  - Arterial injury [Fatal]
  - Cognitive disorder [Unknown]
  - Disturbance in attention [Unknown]
  - Brain abscess [Fatal]
  - Central nervous system lesion [Unknown]
  - Muscular weakness [Unknown]
  - Gait disturbance [Unknown]
  - Immunosuppression [Unknown]
